FAERS Safety Report 15974102 (Version 1)
Quarter: 2019Q1

REPORT INFORMATION
  Report Type: Spontaneous
  Country: FR (occurrence: FR)
  Receive Date: 20190217
  Receipt Date: 20190217
  Transmission Date: 20190418
  Serious: Yes (Life-Threatening)
  Sender: FDA-Public Use
  Company Number: FR-BAXTER-2019BAX003126

PATIENT
  Age: 70 Year
  Sex: Male

DRUGS (8)
  1. DOXORUBICIN HYDROCHLORIDE. [Suspect]
     Active Substance: DOXORUBICIN HYDROCHLORIDE
     Indication: NON-HODGKIN^S LYMPHOMA
     Dosage: 40 MG, UNK
     Route: 042
     Dates: start: 20020607, end: 20031030
  2. PREDNISOLONE. [Concomitant]
     Active Substance: PREDNISOLONE
     Indication: NON-HODGKIN^S LYMPHOMA
     Dosage: 40 MG/M2, 1X/MONTH
     Route: 065
     Dates: start: 20020607, end: 20031030
  3. ENDOXAN 1000 MG, POUDRE POUR SOLUTIONINJECTABLE [Suspect]
     Active Substance: CYCLOPHOSPHAMIDE
     Indication: NON-HODGKIN^S LYMPHOMA
     Dosage: 900 MG, UNK
     Route: 042
     Dates: start: 20020607, end: 20031030
  4. CELLTOP 100 MG/5 ML, SOLUTION INJECTABLE POUR PERFUSION [Suspect]
     Active Substance: ETOPOSIDE
     Indication: NON-HODGKIN^S LYMPHOMA
     Dosage: 150 MG, UNK
     Route: 042
     Dates: start: 20020607, end: 20031030
  5. MABTHERA [Suspect]
     Active Substance: RITUXIMAB
     Indication: NON-HODGKIN^S LYMPHOMA
     Dosage: 600 MG, UNK
     Route: 042
     Dates: start: 20060705, end: 20070125
  6. FLUDARA [Suspect]
     Active Substance: FLUDARABINE PHOSPHATE
     Indication: NON-HODGKIN^S LYMPHOMA
     Dosage: 60 MG, UNK
     Route: 048
     Dates: start: 20060705, end: 20070128
  7. PEGINTRON [Suspect]
     Active Substance: PEGINTERFERON ALFA-2B
     Indication: NON-HODGKIN^S LYMPHOMA
     Dosage: 35 MICROGRAM, ONCE IN 8 DAYS
     Route: 058
     Dates: start: 20020607, end: 20031030
  8. MITOXANTRONE [Concomitant]
     Active Substance: MITOXANTRONE HYDROCHLORIDE
     Indication: NON-HODGKIN^S LYMPHOMA
     Dosage: 15 MG, UNK
     Route: 065
     Dates: start: 20060705, end: 200611

REACTIONS (2)
  - Metastasis [Not Recovered/Not Resolved]
  - Bladder cancer [Not Recovered/Not Resolved]

NARRATIVE: CASE EVENT DATE: 20070413
